FAERS Safety Report 5520501-2 (Version None)
Quarter: 2007Q4

REPORT INFORMATION
  Report Type: 
  Country: None (occurrence: None)
  Receive Date: 20071119
  Receipt Date: 20071107
  Transmission Date: 20080405
  Serious: Yes (Hospitalization)
  Sender: FDA-Public Use
  Company Number: ES-ELI_LILLY_AND_COMPANY-ES200711002100

PATIENT
  Age: 61 Year
  Sex: Female

DRUGS (3)
  1. TERIPARATIDE [Suspect]
     Indication: OSTEOPOROSIS
     Dosage: 20 UG, UNK
     Route: 058
     Dates: start: 20070701
  2. ARAVA [Concomitant]
     Indication: RHEUMATOID ARTHRITIS
  3. OXYGEN [Concomitant]
     Indication: LUNG DISORDER

REACTIONS (2)
  - DIARRHOEA [None]
  - HYPERSENSITIVITY [None]
